FAERS Safety Report 9674746 (Version 1)
Quarter: 2013Q4

REPORT INFORMATION
  Report Type: Spontaneous
  Country: CH (occurrence: CH)
  Receive Date: 20131107
  Receipt Date: 20131107
  Transmission Date: 20140711
  Serious: Yes (Hospitalization)
  Sender: FDA-Public Use
  Company Number: CH-JNJFOC-20131018731

PATIENT
  Age: 59 Year
  Sex: Male

DRUGS (7)
  1. REMICADE [Suspect]
     Indication: COLITIS ULCERATIVE
     Route: 042
     Dates: start: 20130814
  2. TRIATEC [Concomitant]
     Route: 048
  3. PREDNISONE [Concomitant]
     Route: 048
  4. ASPIRIN CARDIO [Concomitant]
     Route: 048
  5. BELOC ZOK [Concomitant]
     Route: 048
  6. SIMVASTATIN [Concomitant]
     Route: 048
  7. DANCOR [Concomitant]
     Route: 048

REACTIONS (1)
  - Angina pectoris [Recovering/Resolving]
